FAERS Safety Report 10199574 (Version 1)
Quarter: 2014Q2

REPORT INFORMATION
  Report Type: Spontaneous
  Country: US (occurrence: US)
  Receive Date: 20140527
  Receipt Date: 20140527
  Transmission Date: 20141212
  Serious: No
  Sender: FDA-Public Use
  Company Number: US-NOVEN-14US009122

PATIENT
  Age: 6 Year
  Sex: Female

DRUGS (4)
  1. DAYTRANA [Suspect]
     Indication: PRODUCT USED FOR UNKNOWN INDICATION
     Dosage: 5 MG, UNK
     Route: 062
     Dates: start: 20140312
  2. DAYTRANA [Suspect]
     Dosage: 10 MG, UNK
     Route: 062
     Dates: start: 20140310, end: 20140310
  3. DAYTRANA [Suspect]
     Dosage: 10 MG, UNK
     Route: 062
     Dates: start: 20131216, end: 2014
  4. DAYTRANA [Suspect]
     Dosage: 5 MG, UNK
     Route: 062
     Dates: start: 20131212, end: 20131215

REACTIONS (5)
  - Psychomotor hyperactivity [Recovered/Resolved]
  - Blepharospasm [Recovered/Resolved]
  - Tic [Recovered/Resolved]
  - Drug prescribing error [Not Recovered/Not Resolved]
  - Wrong technique in drug usage process [Not Recovered/Not Resolved]
